FAERS Safety Report 4603034-7 (Version None)
Quarter: 2005Q1

REPORT INFORMATION
  Report Type: 
  Country: None (occurrence: None)
  Receive Date: 20050215
  Receipt Date: 20050215
  Transmission Date: 20050727
  Serious: Yes (Hospitalization)
  Sender: FDA-Public Use
  Company Number: None

PATIENT
  Age: 43 Year
  Sex: Male
  Weight: 90.7194 kg

DRUGS (3)
  1. VIOXX [Suspect]
     Indication: ANTIINFLAMMATORY THERAPY
     Dosage: 25 MG PER DAY ORAL
     Route: 048
     Dates: start: 20001001, end: 20041201
  2. VIOXX [Suspect]
     Indication: SPINAL LAMINECTOMY
     Dosage: 25 MG PER DAY ORAL
     Route: 048
     Dates: start: 20001001, end: 20041201
  3. VIOXX [Concomitant]

REACTIONS (5)
  - CHEST PAIN [None]
  - DIZZINESS [None]
  - FATIGUE [None]
  - HEADACHE [None]
  - PAIN IN EXTREMITY [None]
